FAERS Safety Report 4270445-1 (Version None)
Quarter: 2004Q1

REPORT INFORMATION
  Report Type: 
  Country: None (occurrence: None)
  Receive Date: 20040114
  Receipt Date: 20040106
  Transmission Date: 20041129
  Serious: Yes (Hospitalization)
  Sender: FDA-Public Use
  Company Number: US-GLAXOSMITHKLINE-A0490910B

PATIENT
  Age: 61 Year
  Sex: Female
  Weight: 59.1 kg

DRUGS (5)
  1. TOPOTECAN [Suspect]
     Indication: SMALL CELL LUNG CANCER STAGE UNSPECIFIED
     Dosage: .5MG TWICE PER DAY
     Route: 048
     Dates: start: 20031112
  2. RADIOTHERAPY [Suspect]
     Indication: SMALL CELL LUNG CANCER STAGE UNSPECIFIED
     Dosage: 1.5GY TWICE PER DAY
     Dates: start: 20031112
  3. CISPLATIN [Suspect]
     Indication: SMALL CELL LUNG CANCER STAGE UNSPECIFIED
     Dosage: 60MGM2 SINGLE DOSE
     Route: 042
     Dates: start: 20031022, end: 20031022
  4. ETOPOSIDE [Suspect]
     Indication: SMALL CELL LUNG CANCER STAGE UNSPECIFIED
     Dosage: 120MGM2 PER DAY
     Route: 042
     Dates: start: 20031022, end: 20031024
  5. PRILOSEC [Concomitant]
     Dosage: 20MG PER DAY
     Route: 048

REACTIONS (9)
  - BLOOD CHOLESTEROL INCREASED [None]
  - BLOOD TRIGLYCERIDES INCREASED [None]
  - CHEST PAIN [None]
  - ELECTROCARDIOGRAM T WAVE INVERSION [None]
  - HIGH DENSITY LIPOPROTEIN DECREASED [None]
  - LIPIDS INCREASED [None]
  - LOW DENSITY LIPOPROTEIN INCREASED [None]
  - OESOPHAGITIS [None]
  - VOMITING [None]
